FAERS Safety Report 15244380 (Version 1)
Quarter: 2018Q3

REPORT INFORMATION
  Report Type: Spontaneous
  Country: US (occurrence: US)
  Receive Date: 20180806
  Receipt Date: 20180806
  Transmission Date: 20181010
  Serious: No
  Sender: FDA-Public Use
  Company Number: US-ABBVIE-18K-163-2411517-00

PATIENT

DRUGS (1)
  1. MAVYRET [Suspect]
     Active Substance: GLECAPREVIR\PIBRENTASVIR
     Indication: HEPATITIS C
     Route: 048
     Dates: start: 201806

REACTIONS (20)
  - Headache [Unknown]
  - Fatigue [Unknown]
  - Dizziness [Unknown]
  - Arthritis [Unknown]
  - Depression [Unknown]
  - Hyperhidrosis [Unknown]
  - Rash [Unknown]
  - Anxiety [Unknown]
  - Asthenopia [Unknown]
  - Eye irritation [Unknown]
  - Insomnia [Unknown]
  - Mood altered [Unknown]
  - Irritability [Unknown]
  - Pupillary disorder [Unknown]
  - Gastric disorder [Unknown]
  - Rash macular [Unknown]
  - Feeling abnormal [Unknown]
  - Vision blurred [Unknown]
  - Dry mouth [Unknown]
  - Weight fluctuation [Unknown]
